FAERS Safety Report 10444992 (Version 6)
Quarter: 2015Q1

REPORT INFORMATION
  Report Type: Report from Study
  Country: JP (occurrence: JP)
  Receive Date: 20140910
  Receipt Date: 20150326
  Transmission Date: 20150720
  Serious: Yes (Other)
  Sender: FDA-Public Use
  Company Number: JP-PFIZER INC-2014248807

PATIENT
  Age: 84 Year
  Sex: Male
  Weight: 55 kg

DRUGS (16)
  1. FOSPHENYTOIN SODIUM. [Suspect]
     Active Substance: FOSPHENYTOIN SODIUM
     Dosage: 9.3MG/KG AT 17.5 MG/MIN IN 0.9% PHYSIOLOGICAL SALINE (1:14)
     Dates: start: 20120922
  2. THEODOR [Concomitant]
     Dosage: 2 TABLETS
     Route: 048
  3. CEREB [Concomitant]
     Indication: GASTRIC DISORDER
  4. FOSPHENYTOIN SODIUM. [Suspect]
     Active Substance: FOSPHENYTOIN SODIUM
     Dosage: 9.3MG/KG AT 17.5 MG/MIN IN 0.9% PHYSIOLOGICAL SALINE (1:14)
     Dates: start: 20120924
  5. PANALDINE [Concomitant]
     Active Substance: TICLOPIDINE HYDROCHLORIDE
     Dosage: 2 TABLETS
     Route: 048
  6. ITOROL [Concomitant]
     Active Substance: ISOSORBIDE MONONITRATE
     Dosage: 1 TABLET
     Route: 048
  7. CEREB [Concomitant]
     Indication: EPILEPSY
     Dosage: 800 MG
     Dates: start: 20120921
  8. LIPITOR [Concomitant]
     Active Substance: ATORVASTATIN CALCIUM
     Dosage: 1 TABLET
     Route: 048
  9. AMLODIN OD [Concomitant]
     Active Substance: AMLODIPINE BESYLATE
     Dosage: 1 TABLET
     Route: 048
  10. DIPRIVAN [Concomitant]
     Active Substance: PROPOFOL
     Indication: EPILEPSY
     Dosage: 192CC
     Dates: start: 20120922, end: 20120926
  11. FOSPHENYTOIN SODIUM. [Suspect]
     Active Substance: FOSPHENYTOIN SODIUM
     Indication: STATUS EPILEPTICUS
     Dosage: 22.5MG/KG AT 42.5 MG/MIN IN 0.9% PHYSIOLOGICAL SALINE (1:6)
     Dates: start: 20120921
  12. FOSPHENYTOIN SODIUM. [Suspect]
     Active Substance: FOSPHENYTOIN SODIUM
     Dosage: 9.3MG/KG AT 17.5 MG/MIN IN 0.9% PHYSIOLOGICAL SALINE (1:14)
     Dates: start: 20120923
  13. HARNAL [Concomitant]
     Active Substance: TAMSULOSIN HYDROCHLORIDE
     Indication: BENIGN PROSTATIC HYPERPLASIA
     Dosage: 1 TABLET
     Route: 048
  14. GASTER [Concomitant]
     Active Substance: FAMOTIDINE
     Dosage: 1 TABLET
     Route: 048
  15. BAYASPIRIN [Concomitant]
     Active Substance: ASPIRIN
     Dosage: 1 TABLET
     Route: 048
  16. GRACTIV [Concomitant]
     Dosage: 1 TABLET
     Route: 048

REACTIONS (2)
  - Altered state of consciousness [Recovered/Resolved with Sequelae]
  - Respiratory disorder [Recovering/Resolving]

NARRATIVE: CASE EVENT DATE: 20120922
